FAERS Safety Report 4277396-7 (Version None)
Quarter: 2004Q1

REPORT INFORMATION
  Report Type: 
  Country: None (occurrence: None)
  Receive Date: 20040121
  Receipt Date: 20040107
  Transmission Date: 20041129
  Serious: Yes (Death, Hospitalization)
  Sender: FDA-Public Use
  Company Number: US-SHR-03-019328

PATIENT
  Age: 84 Year
  Sex: Female
  Weight: 56 kg

DRUGS (8)
  1. GM-CSF (GM-CSF ) (SARGRAMOSTIM) INJECTION [Suspect]
     Indication: COLORECTAL CANCER METASTATIC
     Dosage: 423 MG DAILY X 5 DAYS, SUBCUTANEOUS
     Route: 058
     Dates: start: 20031122, end: 20031228
  2. CAMPTOSAR [Suspect]
     Indication: COLORECTAL CANCER METASTATIC
     Dosage: 211 MG, 1X/WEEK X 4WEEKS, INTRAVENOUS
     Route: 042
     Dates: start: 20031121, end: 20031228
  3. FLUOROURACIL [Suspect]
     Indication: COLORECTAL CANCER METASTATIC
     Dosage: 845 MG ONCE WEEKLY X 4 WEEKS, INTRAVENOUS
     Route: 042
     Dates: start: 20031121, end: 20031228
  4. LEUCOVORIN CALCIUM [Suspect]
     Indication: COLORECTAL CANCER METASTATIC
     Dosage: 34 MG ONCE WEEKLY X 4 WEEKS, INTRAVENOUS
     Route: 042
     Dates: start: 20031121, end: 20031228
  5. IMODIUM [Concomitant]
  6. ZOFRAN/GFR/ (ONDANSETRON HYDROCHLORIDE) [Concomitant]
  7. MEGACE [Concomitant]
  8. LEVAQUIN [Concomitant]

REACTIONS (20)
  - ANOREXIA [None]
  - ASTHENIA [None]
  - BLOOD GLUCOSE INCREASED [None]
  - DIARRHOEA [None]
  - DYSPHAGIA [None]
  - DYSPNOEA [None]
  - FEBRILE NEUTROPENIA [None]
  - HYPOKALAEMIA [None]
  - HYPOTENSION [None]
  - INFLUENZA [None]
  - METABOLIC ACIDOSIS [None]
  - MYALGIA [None]
  - NAUSEA [None]
  - RENAL FAILURE [None]
  - RESPIRATORY FAILURE [None]
  - TACHYCARDIA [None]
  - TACHYPNOEA [None]
  - UNRESPONSIVE TO PAIN STIMULI [None]
  - URINE OUTPUT DECREASED [None]
  - VOMITING [None]
